FAERS Safety Report 4727828-2 (Version None)
Quarter: 2005Q3

REPORT INFORMATION
  Report Type: 
  Country: None (occurrence: None)
  Receive Date: 20050728
  Receipt Date: 20031121
  Transmission Date: 20060218
  Serious: Yes (Hospitalization, Disabling)
  Sender: FDA-Public Use
  Company Number: US-MERCK-0311USA02540

PATIENT
  Age: 40 Year
  Sex: Male
  Weight: 124 kg

DRUGS (4)
  1. VIOXX [Suspect]
     Indication: RHEUMATOID ARTHRITIS
     Route: 048
     Dates: start: 19990101, end: 20001002
  2. VIOXX [Suspect]
     Route: 048
     Dates: start: 20001201, end: 20010301
  3. VIOXX [Suspect]
     Indication: SPORTS INJURY
     Route: 048
     Dates: start: 19990101, end: 20001002
  4. VIOXX [Suspect]
     Route: 048
     Dates: start: 20001201, end: 20010301

REACTIONS (37)
  - AGITATION [None]
  - ANXIETY [None]
  - ARTHROPATHY [None]
  - BASILAR ARTERY OCCLUSION [None]
  - BLOOD CHOLESTEROL INCREASED [None]
  - BRAIN STEM INFARCTION [None]
  - CELLULITIS [None]
  - CEREBELLAR INFARCTION [None]
  - CEREBRAL ARTERY STENOSIS [None]
  - CEREBRAL INFARCTION [None]
  - CHEST PAIN [None]
  - COMA [None]
  - DEPRESSION [None]
  - DILATATION ATRIAL [None]
  - DIPLOPIA [None]
  - DRUG INTERACTION [None]
  - DYSARTHRIA [None]
  - EMBOLIC CEREBRAL INFARCTION [None]
  - HYPERGLYCAEMIA [None]
  - HYPERTENSION [None]
  - HYPERVENTILATION [None]
  - HYPOAESTHESIA [None]
  - HYPOXIA [None]
  - INJURY [None]
  - LABORATORY TEST ABNORMAL [None]
  - LACUNAR INFARCTION [None]
  - MUSCLE SPASMS [None]
  - OVERDOSE [None]
  - PAIN IN JAW [None]
  - PARAESTHESIA ORAL [None]
  - PULMONARY EMBOLISM [None]
  - STOMACH DISCOMFORT [None]
  - STRESS [None]
  - TRANSIENT ISCHAEMIC ATTACK [None]
  - UROSEPSIS [None]
  - VENTRICULAR HYPERTROPHY [None]
  - VERTIGO [None]
